FAERS Safety Report 4565619-6 (Version None)
Quarter: 2005Q1

REPORT INFORMATION
  Report Type: 
  Country: None (occurrence: None)
  Receive Date: 20050125
  Receipt Date: 20050125
  Transmission Date: 20050727
  Serious: No
  Sender: FDA-Public Use
  Company Number: None

PATIENT
  Age: 37 Year
  Sex: Female

DRUGS (1)
  1. ENBREL [Suspect]
     Indication: RHEUMATOID ARTHRITIS
     Dosage: 50MG  ONCE WEEKLY SUBCUTANEOUS
     Route: 058
     Dates: start: 20040504, end: 20040810

REACTIONS (1)
  - WHITE BLOOD CELL COUNT DECREASED [None]
